FAERS Safety Report 12553218 (Version 2)
Quarter: 2016Q3

REPORT INFORMATION
  Report Type: Report from Study
  Country: US (occurrence: US)
  Receive Date: 20160713
  Receipt Date: 20160722
  Transmission Date: 20161109
  Serious: Yes (Hospitalization, Other)
  Sender: FDA-Public Use
  Company Number: US-GILEAD-2016-0223452

PATIENT
  Age: 42 Year
  Sex: Female
  Weight: 62 kg

DRUGS (5)
  1. LEVOTHYROXINE. [Suspect]
     Active Substance: LEVOTHYROXINE
     Dosage: 75 UG, UNK
     Route: 065
  2. PREDNISONE. [Concomitant]
     Active Substance: PREDNISONE
  3. OXYGEN. [Concomitant]
     Active Substance: OXYGEN
  4. AMBRISENTAN [Suspect]
     Active Substance: AMBRISENTAN
     Indication: PULMONARY HYPERTENSION
     Dosage: 10 MG, QD
     Route: 065
  5. LEVOTHYROXINE. [Suspect]
     Active Substance: LEVOTHYROXINE
     Indication: PRODUCT USED FOR UNKNOWN INDICATION
     Dosage: 100 UG, UNK
     Route: 065

REACTIONS (5)
  - Dyspnoea [Not Recovered/Not Resolved]
  - Orthopnoea [Not Recovered/Not Resolved]
  - Pericardial effusion [Not Recovered/Not Resolved]
  - Thyroid hormones increased [Not Recovered/Not Resolved]
  - Oxygen saturation decreased [Unknown]

NARRATIVE: CASE EVENT DATE: 20160614
